FAERS Safety Report 5029440-7 (Version None)
Quarter: 2006Q2

REPORT INFORMATION
  Report Type: 
  Country: None (occurrence: None)
  Receive Date: 20060613
  Receipt Date: 20060530
  Transmission Date: 20061013
  Serious: Yes (Other)
  Sender: FDA-Public Use
  Company Number: 2006RR-02480

PATIENT
  Sex: Female

DRUGS (1)
  1. AMOXICILLIN [Suspect]

REACTIONS (3)
  - CONDITION AGGRAVATED [None]
  - DEAFNESS [None]
  - EMOTIONAL DISTRESS [None]
